FAERS Safety Report 9758785 (Version 1)
Quarter: 2013Q4

REPORT INFORMATION
  Report Type: Spontaneous
  Country: US (occurrence: None)
  Receive Date: 20131216
  Receipt Date: 20131216
  Transmission Date: 20140711
  Serious: Yes (Hospitalization, Other)
  Sender: FDA-Public Use
  Company Number: 072866

PATIENT
  Age: 79 Year
  Sex: Female

DRUGS (1)
  1. CIMZIA [Suspect]
     Indication: CROHN^S DISEASE
     Dosage: (400 MG 1X/2 WEEKS, INITIAL DOSES 400MG AT WEEKS 0,2,4.MAINTENANCE DOSES 400MG EVERY 4 WEEKS)

REACTIONS (3)
  - Hypoaesthesia [None]
  - Paraesthesia [None]
  - Feeling abnormal [None]
